FAERS Safety Report 14251359 (Version 1)
Quarter: 2017Q4

REPORT INFORMATION
  Report Type: Not Available
  Country: JP (occurrence: JP)
  Receive Date: 20171205
  Receipt Date: 20171205
  Transmission Date: 20180321
  Serious: Yes (Other)
  Sender: FDA-Public Use
  Company Number: JP-MIDATECHPHARMA-2017-JP-000100

PATIENT
  Age: 74 Year
  Sex: Male

DRUGS (1)
  1. TAMOXIFEN (NON-SPECIFIC) [Suspect]
     Active Substance: TAMOXIFEN
     Dosage: 20 MG DAILY

REACTIONS (1)
  - Pulmonary fibrosis [Unknown]
